FAERS Safety Report 6920766-6 (Version None)
Quarter: 2010Q3

REPORT INFORMATION
  Report Type: 
  Country: None (occurrence: None)
  Receive Date: 20100812
  Receipt Date: 20100804
  Transmission Date: 20110219
  Serious: Yes (Hospitalization, Other)
  Sender: FDA-Public Use
  Company Number: CO-NOVOPROD-312612

PATIENT
  Age: 13 Month
  Sex: Male

DRUGS (2)
  1. NOVOSEVEN [Suspect]
     Indication: HAEMOPHILIA
     Dosage: 1.2 MG, THREE TIMES WEEK
     Route: 042
     Dates: start: 20100622
  2. ANTIHEMOPHILIC FACTOR (HUMAN) [Concomitant]
     Indication: HAEMOPHILIA
     Dosage: 500 U THREE TIMES WEEK
     Route: 042

REACTIONS (7)
  - HYPOTHERMIA [None]
  - MUSCLE RIGIDITY [None]
  - NEUROLOGICAL EXAMINATION ABNORMAL [None]
  - NUCHAL RIGIDITY [None]
  - POOR PERIPHERAL CIRCULATION [None]
  - RESPIRATORY DISTRESS [None]
  - TACHYCARDIA [None]
